FAERS Safety Report 8019565-6 (Version None)
Quarter: 2012Q1

REPORT INFORMATION
  Report Type: 
  Country: None (occurrence: None)
  Receive Date: 20120103
  Receipt Date: 20111128
  Transmission Date: 20120608
  Serious: No
  Sender: FDA-Public Use
  Company Number: US-BAYER-2011-114468

PATIENT
  Sex: Male

DRUGS (4)
  1. PROZAC [Concomitant]
  2. SYNTHROID [Concomitant]
  3. AVELOX [Suspect]
     Indication: SINUSITIS
     Dosage: 400 MG, QD
     Route: 048
     Dates: end: 20111126
  4. TOPROL-XL [Concomitant]

REACTIONS (5)
  - NASAL CONGESTION [None]
  - SINUS HEADACHE [None]
  - MIDDLE EAR EFFUSION [None]
  - VERTIGO [None]
  - SINUSITIS [None]
